FAERS Safety Report 6701250-1 (Version None)
Quarter: 2010Q2

REPORT INFORMATION
  Report Type: 
  Country: None (occurrence: None)
  Receive Date: 20100427
  Receipt Date: 20100419
  Transmission Date: 20101027
  Serious: Yes (Hospitalization)
  Sender: FDA-Public Use
  Company Number: CIP10000849

PATIENT
  Age: 85 Year
  Sex: Female

DRUGS (6)
  1. RISEDRONATE SODIUM [Suspect]
     Indication: OSTEOPOROSIS
     Dosage: 17.5 MG ONCE WEEKLY, ORAL
     Route: 048
     Dates: start: 20091102, end: 20100228
  2. ASPIRIN [Concomitant]
  3. GASTER /00661201/ (OMEPRAZOLE) [Concomitant]
  4. JUVELA /00110502/ (TOCOPHERYL ACETATE) [Concomitant]
  5. ALFASULY (ALFACALCIDOL) [Concomitant]
  6. KAKKON-TO (HERBAL EXTRACT NOS) [Concomitant]

REACTIONS (24)
  - ALANINE AMINOTRANSFERASE INCREASED [None]
  - ANTINUCLEAR ANTIBODY INCREASED [None]
  - ASPARTATE AMINOTRANSFERASE INCREASED [None]
  - AUTOIMMUNE HEPATITIS [None]
  - BLOOD ALKALINE PHOSPHATASE INCREASED [None]
  - BLOOD BILIRUBIN INCREASED [None]
  - BLOOD LACTATE DEHYDROGENASE INCREASED [None]
  - BONE MARROW FAILURE [None]
  - CYTOMEGALOVIRUS TEST POSITIVE [None]
  - DECREASED APPETITE [None]
  - DISSEMINATED INTRAVASCULAR COAGULATION [None]
  - DIZZINESS [None]
  - EPSTEIN-BARR VIRUS ANTIBODY POSITIVE [None]
  - HEPATITIS [None]
  - HYPERHIDROSIS [None]
  - HYPOAESTHESIA [None]
  - LEUKOPENIA [None]
  - LIVER DISORDER [None]
  - LYMPHOCYTE STIMULATION TEST POSITIVE [None]
  - MALAISE [None]
  - NASOPHARYNGITIS [None]
  - REFUSAL OF TREATMENT BY PATIENT [None]
  - THROMBOCYTOPENIA [None]
  - URINARY INCONTINENCE [None]
